FAERS Safety Report 5116923-4 (Version None)
Quarter: 2006Q3

REPORT INFORMATION
  Report Type: 
  Country: None (occurrence: None)
  Receive Date: 20060928
  Receipt Date: 20060913
  Transmission Date: 20061208
  Serious: Yes (Life-Threatening)
  Sender: FDA-Public Use
  Company Number: HU-BOEHRINGER INGELHEIM PHARMACEUTICALS, INC.-2006-DE-04902GD

PATIENT

DRUGS (1)
  1. PERSANTIN AMPULE [Suspect]
     Indication: STRESS ECHOCARDIOGRAM
     Route: 042

REACTIONS (1)
  - VENTRICULAR TACHYCARDIA [None]
